FAERS Safety Report 12582333 (Version 1)
Quarter: 2016Q3

REPORT INFORMATION
  Report Type: Spontaneous
  Country: US (occurrence: None)
  Receive Date: 20160721
  Receipt Date: 20160721
  Transmission Date: 20161109
  Serious: Yes (Other)
  Sender: FDA-Public Use
  Company Number: None

PATIENT
  Age: 76 Year
  Sex: Female

DRUGS (1)
  1. TRAMADOL 50MG, 50 MG ZYDUS [Suspect]
     Active Substance: TRAMADOL
     Indication: SPINAL PAIN
     Route: 048

REACTIONS (1)
  - Skin odour abnormal [None]

NARRATIVE: CASE EVENT DATE: 20160720
